FAERS Safety Report 12879130 (Version 1)
Quarter: 2016Q4

REPORT INFORMATION
  Report Type: Spontaneous
  Country: US (occurrence: US)
  Receive Date: 20161024
  Receipt Date: 20161024
  Transmission Date: 20170207
  Serious: No
  Sender: FDA-Public Use
  Company Number: US-009507513-1610USA008948

PATIENT

DRUGS (11)
  1. VICTOZA [Suspect]
     Active Substance: LIRAGLUTIDE
  2. NOVOLOG MIX 70/30 [Suspect]
     Active Substance: INSULIN ASPART
  3. NOVOLIN 70/30 [Suspect]
     Active Substance: INSULIN HUMAN
  4. HUMULIN R [Suspect]
     Active Substance: INSULIN HUMAN
  5. GLUCOTROL [Suspect]
     Active Substance: GLIPIZIDE
  6. BYETTA [Suspect]
     Active Substance: EXENATIDE
  7. METFORMIN [Suspect]
     Active Substance: METFORMIN HYDROCHLORIDE
  8. TRAJENTA [Suspect]
     Active Substance: LINAGLIPTIN
  9. JANUVIA [Suspect]
     Active Substance: SITAGLIPTIN PHOSPHATE
     Route: 048
  10. NOVOLOG [Suspect]
     Active Substance: INSULIN ASPART
  11. ONGLYZA [Suspect]
     Active Substance: SAXAGLIPTIN HYDROCHLORIDE

REACTIONS (3)
  - Blood creatine phosphokinase increased [Unknown]
  - Arthralgia [Unknown]
  - Drug ineffective [Unknown]
